FAERS Safety Report 6180788-2 (Version None)
Quarter: 2009Q2

REPORT INFORMATION
  Report Type: 
  Country: None (occurrence: None)
  Receive Date: 20090506
  Receipt Date: 20090430
  Transmission Date: 20091009
  Serious: Yes (Hospitalization, Other)
  Sender: FDA-Public Use
  Company Number: US-BIOGENIDEC-2009BI011568

PATIENT
  Age: 37 Year
  Sex: Female

DRUGS (1)
  1. AVONEX [Suspect]
     Indication: MULTIPLE SCLEROSIS
     Route: 030
     Dates: start: 20050906, end: 20081201

REACTIONS (4)
  - NEPHROLITHIASIS [None]
  - NEUROGENIC BLADDER [None]
  - RENAL DISORDER [None]
  - RENAL FAILURE [None]
